FAERS Safety Report 7494939-0 (Version None)
Quarter: 2011Q2

REPORT INFORMATION
  Report Type: 
  Country: None (occurrence: None)
  Receive Date: 20110520
  Receipt Date: 20110511
  Transmission Date: 20111010
  Serious: Yes (Death)
  Sender: FDA-Public Use
  Company Number: FR-UCBSA-031479

PATIENT
  Age: 62 Year
  Sex: Male

DRUGS (5)
  1. NEUPRO [Suspect]
     Indication: PARKINSON'S DISEASE
     Route: 062
     Dates: start: 20110418
  2. AZILECT [Concomitant]
     Indication: PARKINSON'S DISEASE
     Route: 048
     Dates: start: 20100701, end: 20110401
  3. SINEMET [Concomitant]
     Indication: PARKINSON'S DISEASE
     Dosage: FOR SEVERAL YEARS
     Route: 048
     Dates: end: 20110401
  4. REQUIP [Concomitant]
     Dates: end: 20110418
  5. STALEVO 100 [Concomitant]
     Indication: PARKINSON'S DISEASE
     Dosage: FOR SEVERAL YEARS
     Route: 048
     Dates: end: 20110401

REACTIONS (2)
  - MYOCARDIAL INFARCTION [None]
  - MALAISE [None]
